FAERS Safety Report 21104793 (Version 1)
Quarter: 2022Q3

REPORT INFORMATION
  Report Type: Spontaneous
  Country: GB (occurrence: GB)
  Receive Date: 20220720
  Receipt Date: 20220720
  Transmission Date: 20221027
  Serious: Yes (Other)
  Sender: FDA-Public Use
  Company Number: GB-NOVARTISPH-NVSC2022GB164099

PATIENT
  Age: 88 Year

DRUGS (9)
  1. RISPERIDONE [Suspect]
     Active Substance: RISPERIDONE
     Indication: Agitation
     Dosage: 500 UG
     Route: 065
     Dates: start: 20220614
  2. ALENDRONIC ACID [Concomitant]
     Active Substance: ALENDRONIC ACID
     Indication: Osteoporosis
     Dosage: UNK
     Route: 065
     Dates: start: 20220614
  3. BISACODYL [Concomitant]
     Active Substance: BISACODYL
     Indication: Constipation
     Dosage: UNK
     Route: 065
     Dates: start: 20220614
  4. BISOPROLOL [Concomitant]
     Active Substance: BISOPROLOL
     Indication: Blood pressure measurement
     Dosage: UNK
     Route: 065
     Dates: start: 20220614
  5. BONJELA [Concomitant]
     Active Substance: CETALKONIUM CHLORIDE\CHOLINE SALICYLATE\MENTHOL
     Indication: Mouth ulceration
     Dosage: UNK
     Route: 065
     Dates: start: 20220614
  6. CALCIUM [Concomitant]
     Active Substance: CALCIUM
     Indication: Antacid therapy
     Dosage: UNK
     Route: 065
     Dates: start: 20220614
  7. POLYETHYLENE GLYCOLS [Concomitant]
     Active Substance: POLYETHYLENE GLYCOLS
     Indication: Constipation
     Dosage: UNK
     Route: 065
     Dates: start: 20220614
  8. OMEPRAZOLE [Concomitant]
     Active Substance: OMEPRAZOLE
     Indication: Gastrooesophageal reflux disease
     Dosage: UNK
     Route: 065
     Dates: start: 20220614
  9. ACETAMINOPHEN [Concomitant]
     Active Substance: ACETAMINOPHEN
     Indication: Pain
     Dosage: UNK
     Route: 065
     Dates: start: 20220614

REACTIONS (1)
  - Product dose omission issue [Recovered/Resolved]

NARRATIVE: CASE EVENT DATE: 20220705
